FAERS Safety Report 14797298 (Version 2)
Quarter: 2018Q2

REPORT INFORMATION
  Report Type: Spontaneous
  Country: US (occurrence: US)
  Receive Date: 20180424
  Receipt Date: 20180622
  Transmission Date: 20180711
  Serious: Yes (Hospitalization, Other)
  Sender: FDA-Public Use
  Company Number: US-SUN PHARMACEUTICAL INDUSTRIES LTD-2018US-170719

PATIENT
  Age: 36 Year
  Sex: Male

DRUGS (1)
  1. LOPERAMIDE [Suspect]
     Active Substance: LOPERAMIDE
     Indication: PRODUCT USED FOR UNKNOWN INDICATION
     Dosage: 30-200 TABLETS
     Route: 065

REACTIONS (10)
  - Bundle branch block right [Unknown]
  - Intentional overdose [Unknown]
  - Toxicity to various agents [Unknown]
  - Hyperreflexia [Unknown]
  - Cardiac arrest [Unknown]
  - Electrocardiogram QT interval abnormal [Unknown]
  - Substance use [Unknown]
  - Electrocardiogram QRS complex prolonged [Unknown]
  - Hyperthermia [Unknown]
  - Clonus [Unknown]
